FAERS Safety Report 7743536-8 (Version None)
Quarter: 2011Q3

REPORT INFORMATION
  Report Type: 
  Country: None (occurrence: None)
  Receive Date: 20110912
  Receipt Date: 20110905
  Transmission Date: 20111222
  Serious: Yes (Other)
  Sender: FDA-Public Use
  Company Number: KR-ROCHE-552573

PATIENT

DRUGS (1)
  1. CAPECITABINE [Suspect]
     Indication: RECTAL CANCER
     Route: 065

REACTIONS (14)
  - METASTASIS [None]
  - FISTULA [None]
  - ANAL STENOSIS [None]
  - PALMAR-PLANTAR ERYTHRODYSAESTHESIA SYNDROME [None]
  - LEUKOPENIA [None]
  - THROMBOCYTOPENIA [None]
  - ILEUS [None]
  - PELVIC ABSCESS [None]
  - URETERIC STENOSIS [None]
  - PROCTITIS [None]
  - DERMATITIS [None]
  - ANAEMIA [None]
  - ANASTOMOTIC LEAK [None]
  - WOUND [None]
